FAERS Safety Report 13147189 (Version 2)
Quarter: 2017Q1

REPORT INFORMATION
  Report Type: Report from Study
  Country: US (occurrence: US)
  Receive Date: 20170124
  Receipt Date: 20170124
  Transmission Date: 20170428
  Serious: No
  Sender: FDA-Public Use
  Company Number: US-AMGEN-USASL2016160548

PATIENT
  Age: 56 Year
  Sex: Female

DRUGS (1)
  1. REPATHA [Suspect]
     Active Substance: EVOLOCUMAB
     Indication: DIABETES MELLITUS
     Dosage: 140 MG, Q2MO
     Route: 065

REACTIONS (3)
  - Amnesia [Recovered/Resolved]
  - Depressed mood [Recovered/Resolved]
  - Off label use [Unknown]
